FAERS Safety Report 13721205 (Version 3)
Quarter: 2017Q4

REPORT INFORMATION
  Report Type: Spontaneous
  Country: US (occurrence: US)
  Receive Date: 20170706
  Receipt Date: 20171025
  Transmission Date: 20180320
  Serious: Yes (Death, Life-Threatening, Hospitalization)
  Sender: FDA-Public Use
  Company Number: US-EMD SERONO-8166869

PATIENT
  Age: 57 Year
  Sex: Male

DRUGS (2)
  1. REBIF [Suspect]
     Active Substance: INTERFERON BETA-1A
     Route: 058
     Dates: start: 20150113
  2. REBIF [Suspect]
     Active Substance: INTERFERON BETA-1A
     Indication: MULTIPLE SCLEROSIS
     Route: 058
     Dates: start: 20021004

REACTIONS (10)
  - Cholecystitis infective [Unknown]
  - Hepatic cirrhosis [Unknown]
  - Post procedural complication [Unknown]
  - Confusional state [Unknown]
  - Bile duct obstruction [Unknown]
  - Dysarthria [Unknown]
  - Obesity [Unknown]
  - Cholelithiasis [Unknown]
  - Hepatic cancer [Fatal]
  - Procedural hypotension [Unknown]

NARRATIVE: CASE EVENT DATE: 20170510
